FAERS Safety Report 8469539-6 (Version None)
Quarter: 2012Q2

REPORT INFORMATION
  Report Type: 
  Country: None (occurrence: None)
  Receive Date: 20120626
  Receipt Date: 20120611
  Transmission Date: 20120825
  Serious: Yes (Hospitalization)
  Sender: FDA-Public Use
  Company Number: US-JUTA GMBH-2012-10389

PATIENT
  Age: 62 Year
  Sex: Female

DRUGS (4)
  1. CLONIDINE [Suspect]
     Indication: HOT FLUSH
     Dosage: 42 TABLETS OF 0.2 MG, SINGLE
     Route: 065
  2. ACETAMINOPHEN [Suspect]
     Indication: SUICIDE ATTEMPT
     Dosage: UNK
     Route: 065
  3. CLONIDINE [Suspect]
     Indication: SUICIDE ATTEMPT
  4. FUROSEMIDE [Suspect]
     Indication: SUICIDE ATTEMPT
     Dosage: 58 TABLETS OF 40 MG, SINGLE
     Route: 065

REACTIONS (4)
  - BRADYCARDIA [None]
  - HYPOTHERMIA [None]
  - HYPOTENSION [None]
  - INTENTIONAL OVERDOSE [None]
